FAERS Safety Report 7233249-3 (Version None)
Quarter: 2011Q1

REPORT INFORMATION
  Report Type: 
  Country: None (occurrence: None)
  Receive Date: 20110119
  Receipt Date: 20110112
  Transmission Date: 20110831
  Serious: Yes (Hospitalization)
  Sender: FDA-Public Use
  Company Number: B0693233A

PATIENT
  Sex: Female

DRUGS (6)
  1. RASILEZ [Suspect]
     Indication: HYPERTENSION
     Dosage: 300MG PER DAY
     Route: 048
     Dates: start: 20101101, end: 20101213
  2. ALPRAZOLAM [Concomitant]
     Indication: AFFECTIVE DISORDER
     Route: 048
     Dates: start: 20101102
  3. CARDIOCALM [Concomitant]
     Route: 065
  4. DEROXAT [Suspect]
     Indication: AFFECTIVE DISORDER
     Route: 048
     Dates: start: 20101210
  5. HYDROCHLOROTHIAZIDE [Suspect]
     Indication: HYPERTENSION
     Dosage: 25MG PER DAY
     Route: 048
     Dates: start: 20101101, end: 20101213
  6. PASSIFLORA [Concomitant]
     Route: 065

REACTIONS (8)
  - HYPONATRAEMIA [None]
  - HYPOCHLORAEMIA [None]
  - TREMOR [None]
  - CONFUSIONAL STATE [None]
  - INAPPROPRIATE ANTIDIURETIC HORMONE SECRETION [None]
  - HYPOKALAEMIA [None]
  - VOMITING [None]
  - NAUSEA [None]
